FAERS Safety Report 22602846 (Version 1)
Quarter: 2023Q2

REPORT INFORMATION
  Report Type: Report from Study
  Country: US (occurrence: None)
  Receive Date: 20230615
  Receipt Date: 20230615
  Transmission Date: 20230722
  Serious: Yes (Hospitalization)
  Sender: FDA-Public Use
  Company Number: US-ROCHE-3367261

PATIENT
  Age: 55 Year
  Sex: Female
  Weight: 77.6 kg

DRUGS (2)
  1. ATEZOLIZUMAB [Suspect]
     Active Substance: ATEZOLIZUMAB
     Indication: Ovarian cancer
     Dosage: LAST DOSE OF ATEZOLIZUMAB ADMINISTERED ON 28/SEP/2022
     Route: 041
  2. DOXORUBICIN HYDROCHLORIDE [Suspect]
     Active Substance: DOXORUBICIN HYDROCHLORIDE
     Indication: Ovarian cancer
     Dosage: LAST DOSE OF PEGYLATED LIPOSOMAL DOXORUBICIN ADMINISTERED ON 28/SEP/2022
     Route: 042

REACTIONS (1)
  - Jugular vein thrombosis [Not Recovered/Not Resolved]

NARRATIVE: CASE EVENT DATE: 20221005
